FAERS Safety Report 20823783 (Version 5)
Quarter: 2022Q4

REPORT INFORMATION
  Report Type: Spontaneous
  Country: US (occurrence: US)
  Receive Date: 20220513
  Receipt Date: 20221031
  Transmission Date: 20230112
  Serious: Yes (Hospitalization, Other)
  Sender: FDA-Public Use
  Company Number: US-BRISTOL-MYERS SQUIBB COMPANY-2022-022683

PATIENT
  Age: 63 Year
  Sex: Female

DRUGS (2)
  1. POMALYST [Suspect]
     Active Substance: POMALIDOMIDE
     Indication: Plasma cell myeloma
     Dosage: FREQUENCY: DAYS 1-14 OF 28 DAY CYCLE.
     Route: 048
     Dates: start: 20200625
  2. POMALYST [Suspect]
     Active Substance: POMALIDOMIDE

REACTIONS (7)
  - Dehydration [Unknown]
  - Ketoacidosis [Unknown]
  - Nasopharyngitis [Not Recovered/Not Resolved]
  - White blood cell count decreased [Recovered/Resolved]
  - Oropharyngeal pain [Not Recovered/Not Resolved]
  - Cough [Not Recovered/Not Resolved]
  - Off label use [Unknown]

NARRATIVE: CASE EVENT DATE: 20220101
